FAERS Safety Report 6838303-3 (Version None)
Quarter: 2010Q3

REPORT INFORMATION
  Report Type: 
  Country: None (occurrence: None)
  Receive Date: 20100713
  Receipt Date: 20070604
  Transmission Date: 20110219
  Serious: No
  Sender: FDA-Public Use
  Company Number: US-PFIZER INC-2007047022

PATIENT
  Sex: Female
  Weight: 71.363 kg

DRUGS (9)
  1. CHANTIX [Suspect]
     Indication: SMOKING CESSATION THERAPY
     Dates: start: 20070101
  2. FLONASE [Concomitant]
  3. CITALOPRAM HYDROBROMIDE [Concomitant]
  4. OXYBUTIN [Concomitant]
  5. METOPROLOL [Concomitant]
  6. DIAZEPAM [Concomitant]
  7. PLAVIX [Concomitant]
  8. THEOPHYLLINE [Concomitant]
  9. FEMARA [Concomitant]

REACTIONS (2)
  - DIARRHOEA [None]
  - NAUSEA [None]
